FAERS Safety Report 6914271-0 (Version None)
Quarter: 2010Q3

REPORT INFORMATION
  Report Type: 
  Country: None (occurrence: None)
  Receive Date: 20100809
  Receipt Date: 20100730
  Transmission Date: 20110219
  Serious: Yes (Death)
  Sender: FDA-Public Use
  Company Number: B0624207A

PATIENT
  Sex: Female
  Weight: 49 kg

DRUGS (2)
  1. TYKERB [Suspect]
     Indication: BREAST CANCER
     Route: 048
     Dates: start: 20090902, end: 20091104
  2. XELODA [Concomitant]
     Dosage: 2400MG PER DAY
     Route: 048
     Dates: start: 20090729, end: 20091105

REACTIONS (2)
  - DIARRHOEA [None]
  - JAUNDICE [None]
